FAERS Safety Report 5948049-1 (Version None)
Quarter: 2008Q4

REPORT INFORMATION
  Report Type: 
  Country: None (occurrence: None)
  Receive Date: 20081107
  Receipt Date: 20081022
  Transmission Date: 20090506
  Serious: Yes (Death, Hospitalization)
  Sender: FDA-Public Use
  Company Number: 2008PL000178

PATIENT
  Age: 64 Year
  Sex: Female

DRUGS (3)
  1. AZATHIOPRINE [Suspect]
     Indication: HYPEREOSINOPHILIC SYNDROME
     Dosage: 75 MG; QD;
  2. AZATHIOPRINE [Suspect]
     Indication: VASCULITIS
     Dosage: 75 MG; QD;
  3. CYCLOPHOSPHAMIDE [Suspect]
     Indication: DRUG USE FOR UNKNOWN INDICATION
     Dosage: 50 MG; QD;
     Dates: start: 19900801

REACTIONS (6)
  - CELLULITIS [None]
  - ERYTHROLEUKAEMIA [None]
  - NEUTROPENIA [None]
  - OEDEMA [None]
  - PULMONARY HAEMORRHAGE [None]
  - SEPTIC SHOCK [None]
